FAERS Safety Report 18418467 (Version 1)
Quarter: 2020Q4

REPORT INFORMATION
  Report Type: Spontaneous
  Country: FR (occurrence: FR)
  Receive Date: 20201023
  Receipt Date: 20201023
  Transmission Date: 20210114
  Serious: Yes (Other)
  Sender: FDA-Public Use
  Company Number: FR-TEVA-2020-FR-1840538

PATIENT
  Age: 83 Year
  Sex: Male

DRUGS (1)
  1. PROPRANOLOL [Suspect]
     Active Substance: PROPRANOLOL HYDROCHLORIDE
     Indication: HYPERTENSION
     Dosage: 1 DOSAGE FORM DAILY IN THE MORNING AND IN THE EVENING
     Route: 065

REACTIONS (4)
  - Skin papilloma [Unknown]
  - Toxic skin eruption [Unknown]
  - Pigmentation disorder [Unknown]
  - Skin plaque [Unknown]

NARRATIVE: CASE EVENT DATE: 2020
